FAERS Safety Report 25739926 (Version 1)
Quarter: 2025Q3

REPORT INFORMATION
  Report Type: Spontaneous
  Country: JP (occurrence: JP)
  Receive Date: 20250829
  Receipt Date: 20250829
  Transmission Date: 20251020
  Serious: Yes (Other)
  Sender: ACCORD
  Company Number: JP-Accord-501665

PATIENT
  Age: 37 Year
  Sex: Female

DRUGS (6)
  1. EZETIMIBE [Suspect]
     Active Substance: EZETIMIBE
     Indication: Type IIa hyperlipidaemia
  2. PRAVASTATIN SODIUM [Suspect]
     Active Substance: PRAVASTATIN SODIUM
     Indication: Type IIa hyperlipidaemia
  3. ASPIRIN [Suspect]
     Active Substance: ASPIRIN
     Indication: Dyslipidaemia
  4. BISOPROLOL [Suspect]
     Active Substance: BISOPROLOL
     Indication: Dyslipidaemia
  5. EVOLOCUMAB [Suspect]
     Active Substance: EVOLOCUMAB
     Indication: Type IIa hyperlipidaemia
     Route: 058
  6. EZETIMIBE [Suspect]
     Active Substance: EZETIMIBE
     Indication: Coronary artery stenosis

REACTIONS (2)
  - Drug-induced liver injury [Unknown]
  - Maternal exposure during pregnancy [Unknown]
